FAERS Safety Report 9416496 (Version 1)
Quarter: 2013Q3

REPORT INFORMATION
  Report Type: Spontaneous
  Country: US (occurrence: US)
  Receive Date: 20130719
  Receipt Date: 20130719
  Transmission Date: 20140515
  Serious: Yes (Disabling)
  Sender: FDA-Public Use
  Company Number: PR-AE13-000804

PATIENT
  Age: 59 Year
  Sex: Male

DRUGS (1)
  1. DEBROX [Suspect]
     Indication: CERUMEN IMPACTION
     Dosage: OTIC
     Dates: start: 20130629, end: 20130702

REACTIONS (1)
  - Deafness [None]
